FAERS Safety Report 6421537-X (Version None)
Quarter: 2009Q4

REPORT INFORMATION
  Report Type: 
  Country: None (occurrence: None)
  Receive Date: 20091030
  Receipt Date: 20091027
  Transmission Date: 20100525
  Serious: Yes (Life-Threatening)
  Sender: FDA-Public Use
  Company Number: DK-ASTRAZENECA-2009SE15078

PATIENT
  Age: 72 Year
  Sex: Male

DRUGS (1)
  1. MEROPENEM [Suspect]
     Indication: SEPSIS
     Dosage: 2G X 2
     Route: 042

REACTIONS (3)
  - AGRANULOCYTOSIS [None]
  - NEUTROPENIA [None]
  - PANCYTOPENIA [None]
